FAERS Safety Report 12662427 (Version 1)
Quarter: 2016Q3

REPORT INFORMATION
  Report Type: Spontaneous
  Country: TW (occurrence: TW)
  Receive Date: 20160817
  Receipt Date: 20160817
  Transmission Date: 20161109
  Serious: Yes (Other)
  Sender: FDA-Public Use
  Company Number: TW-BAUSCH-BL-2016-019883

PATIENT
  Sex: Female

DRUGS (1)
  1. ACICLOVIR [Suspect]
     Active Substance: ACYCLOVIR
     Indication: PRODUCT USED FOR UNKNOWN INDICATION
     Route: 065

REACTIONS (2)
  - Nephropathy toxic [Unknown]
  - Exposure during pregnancy [Unknown]
